FAERS Safety Report 23819826 (Version 2)
Quarter: 2024Q3

REPORT INFORMATION
  Report Type: Report from Study
  Country: US (occurrence: US)
  Receive Date: 20240506
  Receipt Date: 20240909
  Transmission Date: 20241017
  Serious: Yes (Hospitalization)
  Sender: ROCHE
  Company Number: US-ROCHE-3504427

PATIENT
  Age: 52 Year
  Sex: Male
  Weight: 149.69 kg

DRUGS (7)
  1. OCREVUS [Suspect]
     Active Substance: OCRELIZUMAB
     Indication: Relapsing-remitting multiple sclerosis
     Dosage: THE MOST RECENT DOSE WAS TAKEN ON 29/JUN/2023
     Route: 042
     Dates: start: 20230615
  2. PROPRANOLOL [Concomitant]
     Active Substance: PROPRANOLOL HYDROCHLORIDE
     Indication: Essential tremor
     Route: 048
     Dates: start: 2021
  3. PREGABALIN [Concomitant]
     Active Substance: PREGABALIN
     Indication: Multiple sclerosis
     Route: 048
     Dates: start: 2023
  4. ADVIL [Concomitant]
     Active Substance: IBUPROFEN\IBUPROFEN SODIUM
     Indication: Inflammation
     Route: 048
     Dates: start: 2018
  5. ADVIL [Concomitant]
     Active Substance: IBUPROFEN\IBUPROFEN SODIUM
     Indication: Discomfort
  6. ADVIL [Concomitant]
     Active Substance: IBUPROFEN\IBUPROFEN SODIUM
     Indication: Pain
  7. MINERALS NOS [Concomitant]
     Active Substance: MINERALS
     Indication: Nutritional supplementation
     Route: 048
     Dates: start: 2019

REACTIONS (8)
  - Urinary tract infection [Recovered/Resolved]
  - Asthenia [Recovered/Resolved]
  - Off label use [Unknown]
  - Fungal infection [Recovered/Resolved]
  - Fall [Unknown]
  - Oedema peripheral [Not Recovered/Not Resolved]
  - Headache [Recovering/Resolving]
  - Cystitis [Recovered/Resolved]

NARRATIVE: CASE EVENT DATE: 20231212
